FAERS Safety Report 7610778-1 (Version None)
Quarter: 2011Q3

REPORT INFORMATION
  Report Type: 
  Country: None (occurrence: None)
  Receive Date: 20110707
  Receipt Date: 20110622
  Transmission Date: 20111222
  Serious: Yes (Hospitalization, Other)
  Sender: FDA-Public Use
  Company Number: 2011MA007923

PATIENT
  Age: 7 Year
  Sex: Male

DRUGS (1)
  1. CARBAMAZEPINE [Suspect]
     Indication: CONVULSION
     Dosage: 100 MG/KG;

REACTIONS (5)
  - TOXICITY TO VARIOUS AGENTS [None]
  - CONVULSION [None]
  - OVERDOSE [None]
  - VOMITING [None]
  - LOSS OF CONSCIOUSNESS [None]
